FAERS Safety Report 9124996 (Version 1)
Quarter: 2013Q1

REPORT INFORMATION
  Report Type: Report from Study
  Country: DE (occurrence: DE)
  Receive Date: 20130121
  Receipt Date: 20130121
  Transmission Date: 20140127
  Serious: Yes (Hospitalization)
  Sender: FDA-Public Use
  Company Number: DE-TEVA-379674GER

PATIENT
  Sex: Female

DRUGS (15)
  1. DOXORUBICIN [Suspect]
     Indication: B-CELL LYMPHOMA
     Route: 042
     Dates: start: 20121008
  2. VINCRISTINE [Suspect]
     Indication: B-CELL LYMPHOMA
     Route: 042
     Dates: start: 20121008
  3. PREDNISONE [Suspect]
     Indication: B-CELL LYMPHOMA
     Route: 048
     Dates: start: 20121008
  4. RITUXIMAB [Suspect]
     Indication: B-CELL LYMPHOMA
     Route: 042
     Dates: start: 20121012
  5. CYCLOPHOSPHAMIDE [Suspect]
     Indication: B-CELL LYMPHOMA
     Route: 042
     Dates: start: 20121008
  6. PEGFILGRASTIM [Suspect]
     Indication: B-CELL LYMPHOMA
     Route: 058
     Dates: start: 20121011
  7. ENALAPRIL [Concomitant]
     Indication: HYPERTENSION
     Dosage: 40 MILLIGRAM DAILY;
     Route: 048
  8. BISOPROLOL [Concomitant]
     Indication: CORONARY ARTERY DISEASE
     Dosage: 5 MILLIGRAM DAILY;
     Route: 048
  9. FUROSEMID [Concomitant]
     Indication: RENAL FAILURE
     Dosage: 40 MILLIGRAM DAILY;
     Route: 048
  10. NATRIUMHYDROGENCARBONAT [Concomitant]
     Indication: PROPHYLAXIS
     Dosage: 1 GRAM DAILY;
     Route: 048
  11. AMLODEP [Concomitant]
     Indication: HYPERTENSION
     Dosage: 5 MILLIGRAM DAILY;
     Route: 048
  12. ALLOPURINOL [Concomitant]
     Dosage: 100 MILLIGRAM DAILY;
     Route: 048
  13. ASPIRIN [Concomitant]
     Indication: ANGINA PECTORIS
     Dosage: 500 MILLIGRAM DAILY;
     Route: 048
  14. PANTOPRAZOL NATRIUM [Concomitant]
     Route: 048
  15. ENOXAPARIN [Concomitant]
     Dosage: 120 MILLIGRAM DAILY;
     Route: 058

REACTIONS (1)
  - Blood creatinine increased [Recovered/Resolved]
